FAERS Safety Report 4928290-7 (Version None)
Quarter: 2006Q1

REPORT INFORMATION
  Report Type: 
  Country: None (occurrence: None)
  Receive Date: 20060228
  Receipt Date: 20051007
  Transmission Date: 20060701
  Serious: Yes (Hospitalization, Disabling, Other)
  Sender: FDA-Public Use
  Company Number: US-MERCK-0510USA06380

PATIENT
  Age: 72 Year
  Sex: Female
  Weight: 80 kg

DRUGS (1)
  1. VIOXX [Suspect]
     Indication: PAIN MANAGEMENT
     Route: 048
     Dates: start: 19990101, end: 20040927

REACTIONS (7)
  - BACK INJURY [None]
  - BACK PAIN [None]
  - CARDIOVASCULAR DISORDER [None]
  - CHEST PAIN [None]
  - DEPRESSION [None]
  - LIMB INJURY [None]
  - MYOCARDIAL INFARCTION [None]
